FAERS Safety Report 5609208-0 (Version None)
Quarter: 2008Q1

REPORT INFORMATION
  Report Type: 
  Country: None (occurrence: None)
  Receive Date: 20080131
  Receipt Date: 20080123
  Transmission Date: 20080703
  Serious: Yes (Hospitalization, Other)
  Sender: FDA-Public Use
  Company Number: US-BAYER-200713193BCC

PATIENT
  Age: 50 Year
  Sex: Female
  Weight: 64 kg

DRUGS (1)
  1. ASPIRIN [Suspect]
     Indication: HEADACHE
     Route: 048

REACTIONS (4)
  - BLOOD COUNT ABNORMAL [None]
  - CONTUSION [None]
  - GASTRIC ULCER [None]
  - LOSS OF CONSCIOUSNESS [None]
